FAERS Safety Report 8571632-4 (Version None)
Quarter: 2012Q2

REPORT INFORMATION
  Report Type: 
  Country: None (occurrence: None)
  Receive Date: 20120418
  Receipt Date: 20090501
  Transmission Date: 20120825
  Serious: Yes (Other)
  Sender: FDA-Public Use
  Company Number: PHEH2009US04330

PATIENT
  Sex: Female

DRUGS (4)
  1. DIOVAN HCT [Suspect]
     Dosage: 160/25 MG
  2. LIPITOR /NET/ (ATORVASTATION CALCIUM) [Concomitant]
  3. SYNTHROID [Concomitant]
  4. TENORMIN [Concomitant]

REACTIONS (2)
  - BLOOD POTASSIUM DECREASED [None]
  - HYPOTENSION [None]
